FAERS Safety Report 23675271 (Version 2)
Quarter: 2025Q1

REPORT INFORMATION
  Report Type: Spontaneous
  Country: US (occurrence: US)
  Receive Date: 20240327
  Receipt Date: 20250120
  Transmission Date: 20250408
  Serious: No
  Sender: DR REDDYS
  Company Number: US-MLMSERVICE-20240311-4877756-1

PATIENT
  Sex: Female

DRUGS (23)
  1. GUAIFENESIN [Suspect]
     Active Substance: GUAIFENESIN
     Indication: Acute sinusitis
     Route: 048
  2. SUMATRIPTAN [Suspect]
     Active Substance: SUMATRIPTAN
     Indication: Product used for unknown indication
  3. VICKS DAYQUIL [Suspect]
     Active Substance: DEXTROMETHORPHAN HYDROBROMIDE\GUAIFENESIN
     Indication: Acute sinusitis
  4. VICKS NYQUIL [Suspect]
     Active Substance: ACETAMINOPHEN\DEXTROMETHORPHAN HYDROBROMIDE\DOXYLAMINE SUCCINATE
     Indication: Acute sinusitis
  5. ALBUTEROL SULFATE [Concomitant]
     Active Substance: ALBUTEROL SULFATE
     Indication: Chronic obstructive pulmonary disease
     Dosage: INHALE TWO PUFFS PO EVERY 6 H AS NEEDED FOR SHORTNESS OF BREATH
     Route: 055
  6. ALBUTEROL SULFATE [Concomitant]
     Active Substance: ALBUTEROL SULFATE
     Indication: Dyspnoea
  7. ALBUTEROL\IPRATROPIUM [Concomitant]
     Active Substance: ALBUTEROL\IPRATROPIUM
     Indication: Chronic obstructive pulmonary disease
     Route: 050
  8. ALBUTEROL\IPRATROPIUM [Concomitant]
     Active Substance: ALBUTEROL\IPRATROPIUM
     Indication: Dyspnoea
  9. ALBUTEROL\IPRATROPIUM [Concomitant]
     Active Substance: ALBUTEROL\IPRATROPIUM
     Indication: Upper respiratory tract infection
  10. RIVAROXABAN [Concomitant]
     Active Substance: RIVAROXABAN
     Indication: Prophylaxis
     Route: 048
  11. ATORVASTATIN [Concomitant]
     Active Substance: ATORVASTATIN
     Indication: Hyperlipidaemia
     Route: 048
  12. ESOMEPRAZOLE [Concomitant]
     Active Substance: ESOMEPRAZOLE
     Indication: Gastrooesophageal reflux disease
     Route: 048
  13. LIDOCAINE [Concomitant]
     Active Substance: LIDOCAINE
     Indication: Back pain
     Dosage: APPLY ONE PATCH FOR 12 H, THEN REMOVE PATCH FOR 12 H
     Route: 048
  14. METAXALONE [Concomitant]
     Active Substance: METAXALONE
     Indication: Back pain
     Dosage: APPLY ONE PATCH FOR 12 H, THEN REMOVE PATCH FOR 12 H
     Route: 048
  15. FENTANYL [Concomitant]
     Active Substance: FENTANYL
     Indication: Back pain
     Dosage: APPLY ONE PATCH EVERY 72 H. REMOVE OLD PATCH WHEN APPLYING NEW.
     Route: 048
  16. HYDROMORPHONE [Concomitant]
     Active Substance: HYDROMORPHONE
     Indication: Breakthrough pain
     Dosage: TAKE ONE TABLET BY MOUTH EVERY 6 H AS NEEDED FOR BREAKTHROUGH PAIN
     Route: 048
  17. NALOXONE [Concomitant]
     Active Substance: NALOXONE
     Indication: Drug use disorder
     Route: 045
  18. ZOLPIDEM [Concomitant]
     Active Substance: ZOLPIDEM TARTRATE
     Indication: Insomnia
     Dosage: TAKE ONE TABLET PO AT BEDTIME FOR SLEEP
     Route: 048
  19. HYDROXYZINE PAMOATE [Concomitant]
     Active Substance: HYDROXYZINE PAMOATE
     Indication: Anxiety
     Dosage: TAKE ONE CAPSULE UP TO THREE TIMES DAILY FOR ANXIETY
     Route: 048
  20. PROMETHAZINE [Concomitant]
     Active Substance: PROMETHAZINE HYDROCHLORIDE
     Indication: Nausea
     Dosage: TAKE ONE CAPSULE UP TO THREE TIMES DAILY FOR ANXIETY
     Route: 048
  21. NICOTINE [Concomitant]
     Active Substance: NICOTINE
     Indication: Ex-tobacco user
     Dosage: TAKE ONE CAPSULE UP TO THREE TIMES DAILY FOR ANXIETY
     Route: 048
  22. ESTRADIOL [Concomitant]
     Active Substance: ESTRADIOL
     Indication: Atrophic vulvovaginitis
     Route: 067
  23. CHOLECALCIFEROL [Concomitant]
     Active Substance: CHOLECALCIFEROL
     Indication: Vitamin supplementation
     Dosage: TAKE ONE CAPSULE UP TO THREE TIMES DAILY FOR ANXIETY
     Route: 048

REACTIONS (2)
  - Drug ineffective [Unknown]
  - Rash [Unknown]
